FAERS Safety Report 10219399 (Version 1)
Quarter: 2014Q1

REPORT INFORMATION
  Report Type: Spontaneous
  Country: US (occurrence: None)
  Receive Date: 20140306
  Receipt Date: 20140306
  Transmission Date: 20141002
  Serious: Yes (Other)
  Sender: FDA-Public Use
  Company Number: 163-21880-13100744

PATIENT
  Age: 67 Year
  Sex: Female

DRUGS (8)
  1. REVLIMID [Suspect]
     Indication: PLASMA CELL MYELOMA
     Dosage: 10 MG, 21 IN 21 D, PO
     Route: 048
     Dates: start: 20100728
  2. PANTOPRAZOLE (PANTOPRAZOLE) [Concomitant]
  3. FAMOTIDINE (FAMOTIDINE) [Concomitant]
  4. NORTRIPTYLIN (NORTRIPTYLINE HYDROCHLORIDE) [Concomitant]
  5. CLONAZEPAM (CLONAZEPAM) [Concomitant]
  6. CITRACAL WITH VITAMIN D (CALCIUM CITRATE W/COLECALCIFEROL) [Concomitant]
  7. ASPIRIN (ACETYLSALICYLIC ACID) [Concomitant]
  8. PREDNISONE (PREDNISONE) [Concomitant]

REACTIONS (1)
  - Thrombosis [None]
